FAERS Safety Report 6162259-2 (Version None)
Quarter: 2009Q2

REPORT INFORMATION
  Report Type: 
  Country: None (occurrence: None)
  Receive Date: 20090417
  Receipt Date: 20090402
  Transmission Date: 20091009
  Serious: Yes (Life-Threatening)
  Sender: FDA-Public Use
  Company Number: 2009040053

PATIENT
  Age: 90 Year
  Sex: Female

DRUGS (16)
  1. TORSEMIDE [Suspect]
     Dosage: 20 MG (10 MG, 2 IN 1 D), ORAL
     Route: 048
     Dates: start: 20081215, end: 20090203
  2. BACTRIM [Suspect]
     Dosage: 800  MG, (400 MG, 2 IN 1 D), ORAL
     Route: 048
     Dates: start: 20090106, end: 20090114
  3. ALDACTONE [Suspect]
     Dosage: 12.5 MG (12.5 MG, 1 IN 1 D), ORAL
     Route: 048
     Dates: start: 20081219, end: 20090225
  4. VANCOMYCIN HCL [Suspect]
     Dosage: 1000 MG (250 MG, 4 IN 1 D)
     Dates: start: 20090123, end: 20090130
  5. DAFALGIN [Suspect]
     Dosage: 3 GM (1 GM, 3 IN 1 D), ORAL
     Route: 048
     Dates: start: 20081219, end: 20090121
  6. ENALAPRIL MALEATE [Suspect]
     Dosage: 5 MG (2.5 MG, 2 IN 1 D), ORAL
     Route: 048
     Dates: start: 20081216, end: 20081230
  7. CO AMOXIN [Suspect]
     Dosage: 2400 MG (1200 MG, 2 IN 1 D), INTRAVENOUS DRIP
     Route: 041
     Dates: start: 20081230, end: 20090106
  8. ZOLOFT [Suspect]
     Dosage: 25 MG, ORAL
     Route: 048
     Dates: start: 20090114, end: 20090208
  9. TOLVON (MIANSERIN HYDROCHLORIDE) [Concomitant]
  10. SEROQUEL [Concomitant]
  11. LEVOTHYROXINE SODIUM [Concomitant]
  12. DISTRANEURIN (CLOMETHIAZOLE EDISILATE) [Concomitant]
  13. FLAGYL [Concomitant]
  14. ENOXAPARIN SODIUM [Concomitant]
  15. FOLVITE (FOLIC ACID) [Concomitant]
  16. CALCIMAGON (CALCIUM CARBONATE) [Concomitant]

REACTIONS (1)
  - RENAL FAILURE [None]
